FAERS Safety Report 12059486 (Version 1)
Quarter: 2016Q1

REPORT INFORMATION
  Report Type: Spontaneous
  Country: US (occurrence: None)
  Receive Date: 20160209
  Receipt Date: 20160209
  Transmission Date: 20160526
  Serious: Yes (Other)
  Sender: FDA-Public Use
  Company Number: None

PATIENT
  Age: 17 Year
  Sex: Male
  Weight: 54.43 kg

DRUGS (5)
  1. LAMOTRIGINE EXTENDED RELEASE [Suspect]
     Active Substance: LAMOTRIGINE
     Indication: SEIZURE
     Dates: start: 20160207
  2. LEVETIRACETAM ER [Concomitant]
     Active Substance: LEVETIRACETAM
  3. MULTI VITAMIN [Concomitant]
     Active Substance: VITAMINS
  4. LAMOTRIGINE EXTENDED RELEASE [Suspect]
     Active Substance: LAMOTRIGINE
     Indication: SEIZURE
     Dates: start: 20151220, end: 20151226
  5. CLONAZEPAM. [Concomitant]
     Active Substance: CLONAZEPAM

REACTIONS (3)
  - Seizure [None]
  - Product quality issue [None]
  - Drug dispensing error [None]

NARRATIVE: CASE EVENT DATE: 20160207
